FAERS Safety Report 23257396 (Version 3)
Quarter: 2024Q2

REPORT INFORMATION
  Report Type: Spontaneous
  Country: BE (occurrence: None)
  Receive Date: 20231204
  Receipt Date: 20240608
  Transmission Date: 20240715
  Serious: Yes (Disabling)
  Sender: FDA-Public Use
  Company Number: BE-ROCHE-3450007

PATIENT
  Age: 63 Year
  Sex: Male
  Weight: 85 kg

DRUGS (2)
  1. ZELBORAF [Suspect]
     Active Substance: VEMURAFENIB
     Indication: Salivary gland cancer
     Dosage: 2X4 DAYS
     Route: 048
     Dates: start: 20221027
  2. ENALAPRIL [Concomitant]
     Active Substance: ENALAPRIL
     Indication: Hypertension
     Route: 048

REACTIONS (4)
  - Arthritis [Not Recovered/Not Resolved]
  - Toxicity to various agents [Unknown]
  - Musculoskeletal toxicity [Unknown]
  - Off label use [Unknown]

NARRATIVE: CASE EVENT DATE: 20230201
